FAERS Safety Report 11603943 (Version 2)
Quarter: 2015Q4

REPORT INFORMATION
  Report Type: Spontaneous
  Country: US (occurrence: US)
  Receive Date: 20151007
  Receipt Date: 20151222
  Transmission Date: 20160304
  Serious: Yes (Hospitalization, Disabling, Other)
  Sender: FDA-Public Use
  Company Number: US-BAYER-2015-433436

PATIENT
  Age: 31 Year
  Sex: Female
  Weight: 68.27 kg

DRUGS (3)
  1. DEPO-PROVERA [Concomitant]
     Active Substance: MEDROXYPROGESTERONE ACETATE
  2. METOPROLOL [Concomitant]
     Active Substance: METOPROLOL
     Indication: HYPERTENSION
     Dosage: UNK
     Dates: start: 1999
  3. MIRENA [Suspect]
     Active Substance: LEVONORGESTREL
     Indication: CONTRACEPTION
     Dosage: 20 MCG/24HR, CONT
     Route: 015
     Dates: start: 20110927, end: 20140925

REACTIONS (8)
  - Device use error [None]
  - Embedded device [Not Recovered/Not Resolved]
  - Genital haemorrhage [Not Recovered/Not Resolved]
  - Abdominal pain upper [Not Recovered/Not Resolved]
  - General physical health deterioration [Not Recovered/Not Resolved]
  - Internal injury [None]
  - Injury [Not Recovered/Not Resolved]
  - Deformity [Not Recovered/Not Resolved]

NARRATIVE: CASE EVENT DATE: 201409
